FAERS Safety Report 23400486 (Version 2)
Quarter: 2024Q1

REPORT INFORMATION
  Report Type: Report from Study
  Country: US (occurrence: US)
  Receive Date: 20240115
  Receipt Date: 20240130
  Transmission Date: 20240410
  Serious: Yes (Death, Other)
  Sender: FDA-Public Use
  Company Number: US-ACADIA PHARMACEUTICALS INC.-ACA-2024-PIM-000020

PATIENT
  Age: 69 Year
  Sex: Female

DRUGS (18)
  1. NUPLAZID [Suspect]
     Active Substance: PIMAVANSERIN TARTRATE
     Indication: Parkinson^s disease
     Dosage: 34 MILLIGRAM, QD
     Route: 048
     Dates: start: 202303, end: 20231222
  2. MONISTAT [Concomitant]
     Active Substance: MICONAZOLE NITRATE
  3. LORAZEPAM [Concomitant]
     Active Substance: LORAZEPAM
  4. ACETAMINOPHEN [Concomitant]
     Active Substance: ACETAMINOPHEN
  5. RYTARY [Concomitant]
     Active Substance: CARBIDOPA\LEVODOPA
  6. PREGABALIN [Concomitant]
     Active Substance: PREGABALIN
  7. NUEDEXTA [Concomitant]
     Active Substance: DEXTROMETHORPHAN HYDROBROMIDE\QUINIDINE SULFATE
     Dosage: 20 MG-10MG
  8. MERIBIN [Concomitant]
  9. AZO [Concomitant]
     Active Substance: PHENAZOPYRIDINE HYDROCHLORIDE
     Dosage: DUAL PROTECTION
  10. ALPRAZOLAM [Concomitant]
     Active Substance: ALPRAZOLAM
  11. CITALOPRAM [Concomitant]
     Active Substance: CITALOPRAM HYDROBROMIDE
     Dosage: HBR
  12. SYNTHROID [Concomitant]
     Active Substance: LEVOTHYROXINE SODIUM
  13. BIOTIN [Concomitant]
     Active Substance: BIOTIN
  14. NEUPRO [Concomitant]
     Active Substance: ROTIGOTINE
  15. NOURIANZ [Concomitant]
     Active Substance: ISTRADEFYLLINE
  16. ESZOPICLONE [Concomitant]
     Active Substance: ESZOPICLONE
  17. SERTRALINE HYDROCHLORIDE [Concomitant]
     Active Substance: SERTRALINE HYDROCHLORIDE
  18. SENNA S [DOCUSATE SODIUM;SENNOSIDE A+B] [Concomitant]

REACTIONS (1)
  - Death [Fatal]

NARRATIVE: CASE EVENT DATE: 20231222
